FAERS Safety Report 10149440 (Version 3)
Quarter: 2015Q1

REPORT INFORMATION
  Report Type: Spontaneous
  Country: BR (occurrence: BR)
  Receive Date: 20140502
  Receipt Date: 20140502
  Transmission Date: 20150720
  Serious: Yes (Other)
  Sender: FDA-Public Use
  Company Number: BR-SANOFI-AVENTIS-2013SA080508

PATIENT
  Age: 30 Year
  Sex: Female
  Weight: 70 kg

DRUGS (5)
  1. CLEXANE [Suspect]
     Active Substance: ENOXAPARIN SODIUM
     Indication: COAGULOPATHY
     Route: 058
     Dates: start: 20130621, end: 20140130
  2. ENDOFOLIN [Concomitant]
     Active Substance: FOLIC ACID
     Indication: PREGNANCY
     Route: 048
     Dates: start: 2009
  3. UTROGESTAN [Concomitant]
     Active Substance: PROGESTERONE
     Indication: ABORTION
     Dosage: 1 TABLET IN THE MORNING AND 2 IN THE NIGHT
     Route: 067
     Dates: start: 20130621
  4. SYNTHROID [Concomitant]
     Active Substance: LEVOTHYROXINE SODIUM
     Indication: THYROID DISORDER
     Route: 048
     Dates: start: 20130501
  5. GLIFAGE [Concomitant]
     Active Substance: METFORMIN HYDROCHLORIDE
     Indication: POLYCYSTIC OVARIES
     Dosage: ONE TABLET AFTER LUNCH AND ONE AFTER DINNER
     Route: 048
     Dates: start: 20130501

REACTIONS (2)
  - Amniotic fluid volume increased [Unknown]
  - Exposure during pregnancy [Unknown]
